FAERS Safety Report 5423277-2 (Version None)
Quarter: 2007Q3

REPORT INFORMATION
  Report Type: 
  Country: None (occurrence: None)
  Receive Date: 20070730
  Receipt Date: 20070403
  Transmission Date: 20080115
  Serious: Yes (Other)
  Sender: FDA-Public Use
  Company Number: 200710587BWH

PATIENT
  Age: 60 Year
  Sex: Female

DRUGS (18)
  1. AVELOX [Suspect]
     Indication: BRONCHITIS
     Dosage: 400 MG, ONCE, ORAL
     Route: 048
     Dates: start: 20070215
  2. LIPITOR [Concomitant]
  3. LOPRESSOR [Concomitant]
  4. ZOVIRAX [Concomitant]
  5. OGEN [Concomitant]
  6. MUCINEX DM [Concomitant]
  7. ECOTRIN [Concomitant]
  8. ACTONEL [Concomitant]
  9. OIL OF PRIMROSE [Concomitant]
  10. FISH OIL [Concomitant]
  11. COQ10 [Concomitant]
  12. ASCORBIC ACID [Concomitant]
  13. GARLIC [Concomitant]
  14. LYSINE [Concomitant]
  15. CALCIUM [Concomitant]
  16. TYLENOL REGULAR [Concomitant]
  17. GLUCOSAMINE CHONDROITIN [Concomitant]
  18. NO-FLUSH NIACIN [Concomitant]

REACTIONS (6)
  - BLOOD PRESSURE INCREASED [None]
  - CONFUSIONAL STATE [None]
  - DISORIENTATION [None]
  - DIZZINESS [None]
  - DYSARTHRIA [None]
  - SPEECH DISORDER [None]
